FAERS Safety Report 9491405 (Version 2)
Quarter: 2013Q3

REPORT INFORMATION
  Report Type: Spontaneous
  Country: JP (occurrence: JP)
  Receive Date: 20130830
  Receipt Date: 20130830
  Transmission Date: 20140515
  Serious: Yes (Death)
  Sender: FDA-Public Use
  Company Number: JP-BAYER-2013-074852

PATIENT
  Age: 63 Year
  Sex: Male
  Weight: 65 kg

DRUGS (10)
  1. NEXAVAR [Suspect]
     Indication: HEPATOCELLULAR CARCINOMA
     Dosage: 400 MG, BID
     Route: 048
     Dates: start: 20130507, end: 20130521
  2. NEXAVAR [Suspect]
     Indication: METASTASES TO NECK
  3. AMLODIPINE [Concomitant]
     Indication: HYPERTENSION
     Dosage: DAILY DOSE 5 MG
     Route: 048
  4. ARTIST [Concomitant]
     Indication: HYPERTENSION
     Dosage: DAILY DOSE 5 MG
     Route: 048
  5. LANSOPRAZOLE [Concomitant]
     Indication: GASTROOESOPHAGEAL REFLUX DISEASE
     Dosage: DAILY DOSE 15 MG
     Route: 048
     Dates: end: 20130507
  6. UREPEARL [Concomitant]
     Indication: PROPHYLAXIS
     Dosage: UNK
     Route: 061
     Dates: start: 20130505, end: 20130524
  7. NEXIUM [Concomitant]
     Indication: GASTROOESOPHAGEAL REFLUX DISEASE
     Dosage: DAILY DOSE 20 MG
     Route: 048
     Dates: start: 20130517
  8. SOL-MELCORT [Concomitant]
     Indication: HEPATOCELLULAR CARCINOMA
     Dosage: DAILY DOSE 500 MG
     Route: 042
     Dates: start: 20130501, end: 20130502
  9. SOL-MELCORT [Concomitant]
     Indication: METASTASES TO NECK
     Dosage: DAILY DOSE 250 MG
     Route: 042
     Dates: start: 20130503, end: 20130503
  10. SOL-MELCORT [Concomitant]
     Indication: HEPATOCELLULAR CARCINOMA
     Dosage: DAILY DOSE 125 MG
     Route: 042
     Dates: start: 20130504, end: 20130508

REACTIONS (10)
  - Acute respiratory failure [Fatal]
  - Erythema multiforme [Recovered/Resolved]
  - Hyponatraemia [Recovered/Resolved]
  - Platelet count decreased [Recovered/Resolved]
  - Chromaturia [None]
  - Blood urine present [None]
  - C-reactive protein increased [None]
  - Decreased appetite [None]
  - Insomnia [None]
  - Erythema [Recovered/Resolved]
